FAERS Safety Report 13205485 (Version 1)
Quarter: 2017Q1

REPORT INFORMATION
  Report Type: Spontaneous
  Country: NO (occurrence: NO)
  Receive Date: 20170208
  Receipt Date: 20170208
  Transmission Date: 20170428
  Serious: Yes (Other)
  Sender: FDA-Public Use
  Company Number: NO-PFIZER INC-2017046624

PATIENT
  Age: 69 Year
  Sex: Female

DRUGS (1)
  1. PACLITAXEL. [Suspect]
     Active Substance: PACLITAXEL

REACTIONS (2)
  - Cystitis haemorrhagic [Recovering/Resolving]
  - Chemical cystitis [Recovering/Resolving]
